FAERS Safety Report 13768365 (Version 3)
Quarter: 2017Q4

REPORT INFORMATION
  Report Type: Report from Study
  Country: None (occurrence: US)
  Receive Date: 20170719
  Receipt Date: 20171103
  Transmission Date: 20180320
  Serious: No
  Sender: FDA-Public Use
  Company Number: US-ABBVIE-17K-163-2042355-00

PATIENT
  Sex: Male
  Weight: 86.26 kg

DRUGS (3)
  1. DIGOXIN. [Concomitant]
     Active Substance: DIGOXIN
     Indication: ATRIAL FIBRILLATION
  2. WARFARIN [Concomitant]
     Active Substance: WARFARIN
     Indication: PRODUCT USED FOR UNKNOWN INDICATION
  3. HUMIRA [Suspect]
     Active Substance: ADALIMUMAB
     Indication: RHEUMATOID ARTHRITIS
     Route: 058
     Dates: start: 2011

REACTIONS (3)
  - Blood magnesium decreased [Not Recovered/Not Resolved]
  - Arthralgia [Not Recovered/Not Resolved]
  - Cardiac valve disease [Unknown]

NARRATIVE: CASE EVENT DATE: 2017
